FAERS Safety Report 6373650-3 (Version None)
Quarter: 2009Q3

REPORT INFORMATION
  Report Type: 
  Country: None (occurrence: None)
  Receive Date: 20090924
  Receipt Date: 20090911
  Transmission Date: 20100115
  Serious: Yes (Life-Threatening, Other)
  Sender: FDA-Public Use
  Company Number: GB-PFIZER INC-2009267241

PATIENT
  Age: 11 Year

DRUGS (1)
  1. SOMATROPIN [Suspect]
     Indication: TURNER'S SYNDROME
     Dosage: 1.6 MG, 1X/DAY
     Route: 058
     Dates: start: 20051215, end: 20060130

REACTIONS (1)
  - ANAPHYLACTIC SHOCK [None]
